FAERS Safety Report 16811174 (Version 1)
Quarter: 2019Q3

REPORT INFORMATION
  Report Type: Spontaneous
  Country: US (occurrence: US)
  Receive Date: 20190916
  Receipt Date: 20190916
  Transmission Date: 20191005
  Serious: Yes (Other)
  Sender: FDA-Public Use
  Company Number: US-PFIZER INC-2019394003

PATIENT
  Age: 36 Year
  Sex: Female
  Weight: 99.79 kg

DRUGS (3)
  1. LYRICA [Suspect]
     Active Substance: PREGABALIN
     Indication: BRAIN INJURY
  2. LYRICA [Suspect]
     Active Substance: PREGABALIN
     Indication: NEPHROPATHY
     Dosage: UNK
     Dates: start: 2012
  3. LYRICA [Suspect]
     Active Substance: PREGABALIN
     Indication: NEUROPATHY PERIPHERAL

REACTIONS (6)
  - Off label use [Unknown]
  - Hypoaesthesia [Unknown]
  - Drug effective for unapproved indication [Unknown]
  - Weight decreased [Unknown]
  - Foreign body [Unknown]
  - Limb injury [Unknown]

NARRATIVE: CASE EVENT DATE: 2012
